FAERS Safety Report 22198571 (Version 1)
Quarter: 2023Q2

REPORT INFORMATION
  Report Type: Spontaneous
  Country: CN (occurrence: CN)
  Receive Date: 20230411
  Receipt Date: 20230411
  Transmission Date: 20230721
  Serious: Yes (Other)
  Sender: FDA-Public Use
  Company Number: None

PATIENT
  Age: 37 Year
  Sex: Female

DRUGS (9)
  1. CYCLOPHOSPHAMIDE [Suspect]
     Active Substance: CYCLOPHOSPHAMIDE
     Indication: Breast cancer female
     Dosage: 948 MG, Q2W, D1 (AS A PART OF 4TH CYCLE OF 4DDEC-4DDT NEOADJUVANT CHEMOTHERAPY REGIMEN)
     Route: 041
     Dates: start: 20230303, end: 20230303
  2. CYCLOPHOSPHAMIDE [Suspect]
     Active Substance: CYCLOPHOSPHAMIDE
     Indication: Invasive breast carcinoma
  3. CYCLOPHOSPHAMIDE [Suspect]
     Active Substance: CYCLOPHOSPHAMIDE
     Indication: Breast cancer stage II
  4. CYCLOPHOSPHAMIDE [Suspect]
     Active Substance: CYCLOPHOSPHAMIDE
     Indication: Hormone receptor positive breast cancer
  5. MESNA [Suspect]
     Active Substance: MESNA
     Indication: Prophylaxis
     Dosage: 0.2 G, QD (DOSAGE FORM: INJECTION)
     Route: 041
     Dates: start: 20230303, end: 20230303
  6. DOXORUBICIN HYDROCHLORIDE [Suspect]
     Active Substance: DOXORUBICIN HYDROCHLORIDE
     Indication: Breast cancer female
     Dosage: 40 MG, D1, Q2W (AS A PART OF 4TH CYCLE OF 4DDEC-4DDT NEOADJUVANT CHEMOTHERAPY REGIMEN)
     Route: 041
     Dates: start: 20230303, end: 20230303
  7. DOXORUBICIN HYDROCHLORIDE [Suspect]
     Active Substance: DOXORUBICIN HYDROCHLORIDE
     Indication: Invasive breast carcinoma
  8. DOXORUBICIN HYDROCHLORIDE [Suspect]
     Active Substance: DOXORUBICIN HYDROCHLORIDE
     Indication: Breast cancer stage II
  9. DOXORUBICIN HYDROCHLORIDE [Suspect]
     Active Substance: DOXORUBICIN HYDROCHLORIDE
     Indication: Hormone receptor positive breast cancer

REACTIONS (6)
  - Pulmonary alveolar haemorrhage [Unknown]
  - Interstitial lung disease [Unknown]
  - Pulmonary oedema [Unknown]
  - Organising pneumonia [Unknown]
  - Pneumonia [Unknown]
  - Cough [Unknown]

NARRATIVE: CASE EVENT DATE: 20230316
